FAERS Safety Report 6684336-X (Version None)
Quarter: 2010Q2

REPORT INFORMATION
  Report Type: 
  Country: None (occurrence: None)
  Receive Date: 20100416
  Receipt Date: 20100409
  Transmission Date: 20101027
  Serious: Yes (Hospitalization, Other)
  Sender: FDA-Public Use
  Company Number: PHHY2009CN26154

PATIENT
  Age: 21 Year
  Sex: Male

DRUGS (5)
  1. SEBIVO [Suspect]
     Indication: HEPATITIS B
     Dosage: 600 MG, QD
     Route: 048
     Dates: start: 20070801, end: 20090618
  2. HEPSERA [Concomitant]
     Indication: HEPATITIS B
     Dosage: UNK
     Dates: start: 20080801, end: 20090618
  3. PEGASYS [Concomitant]
     Indication: HEPATITIS C
     Dosage: UNK
     Dates: start: 20080801, end: 20090401
  4. RIBAVIRIN [Concomitant]
     Indication: HEPATITIS C
     Dosage: UNK
     Dates: start: 20080801, end: 20090101
  5. PEGINTERFERON ALFA-2A [Concomitant]
     Indication: HEPATITIS C
     Dosage: UNK
     Dates: start: 20080801, end: 20090401

REACTIONS (24)
  - ANURIA [None]
  - ASPARTATE AMINOTRANSFERASE INCREASED [None]
  - ASTHENIA [None]
  - BLOOD CREATINE PHOSPHOKINASE INCREASED [None]
  - BLOOD LACTIC ACID INCREASED [None]
  - CHEST DISCOMFORT [None]
  - CHROMATURIA [None]
  - COMA [None]
  - DYSPNOEA [None]
  - FATIGUE [None]
  - HAEMODIALYSIS [None]
  - HYPOTONIA [None]
  - LOSS OF CONSCIOUSNESS [None]
  - METABOLIC ACIDOSIS [None]
  - MULTI-ORGAN FAILURE [None]
  - MUSCLE INJURY [None]
  - MYALGIA [None]
  - MYOGLOBINURIA [None]
  - NEUROPATHY PERIPHERAL [None]
  - OEDEMA PERIPHERAL [None]
  - RENAL IMPAIRMENT [None]
  - RHABDOMYOLYSIS [None]
  - STRESS ULCER [None]
  - SYNCOPE [None]
